FAERS Safety Report 10619358 (Version 1)
Quarter: 2014Q4

REPORT INFORMATION
  Report Type: Spontaneous
  Country: US (occurrence: None)
  Receive Date: 20141126
  Receipt Date: 20141126
  Transmission Date: 20150529
  Serious: Yes (Hospitalization, Other)
  Sender: FDA-Public Use
  Company Number: QSC-2014-0829

PATIENT
  Age: 81 Year
  Sex: Female
  Weight: 60.8 kg

DRUGS (6)
  1. LASIX [Concomitant]
     Active Substance: FUROSEMIDE
  2. WARFARIN (WARFARIN) [Concomitant]
     Active Substance: WARFARIN
  3. H.P. ACTHAR [Suspect]
     Active Substance: CORTICOTROPIN
     Indication: GLOMERULONEPHRITIS MEMBRANOUS
     Dosage: 40 UNITS, BIW, SUBCUTANEOUS
     Route: 058
     Dates: start: 20140903
  4. VITAMIN D [Concomitant]
     Active Substance: CHOLECALCIFEROL
  5. SIMVASTATIN (SIMVASTATIN) [Concomitant]
     Active Substance: SIMVASTATIN
  6. AMBIEN (SOLPIDEM TARTRATE) [Concomitant]

REACTIONS (2)
  - Fluid retention [None]
  - Renal tubular necrosis [None]

NARRATIVE: CASE EVENT DATE: 2014
